FAERS Safety Report 6914578-7 (Version None)
Quarter: 2010Q3

REPORT INFORMATION
  Report Type: 
  Country: None (occurrence: None)
  Receive Date: 20100805
  Receipt Date: 20100805
  Transmission Date: 20110219
  Serious: Yes (Hospitalization)
  Sender: FDA-Public Use
  Company Number: None

PATIENT
  Sex: Female
  Weight: 68 kg

DRUGS (2)
  1. QUETIAPINE [Suspect]
     Indication: ANXIETY
     Dates: start: 20100101, end: 20100728
  2. QUETIAPINE [Suspect]
     Indication: OBSESSIVE-COMPULSIVE DISORDER
     Dates: start: 20100101, end: 20100728

REACTIONS (2)
  - DYSTONIA [None]
  - TARDIVE DYSKINESIA [None]
